FAERS Safety Report 11987765 (Version 1)
Quarter: 2016Q1

REPORT INFORMATION
  Report Type: Spontaneous
  Country: US (occurrence: None)
  Receive Date: 20160201
  Receipt Date: 20160201
  Transmission Date: 20160526
  Serious: No
  Sender: FDA-Public Use
  Company Number: None

PATIENT

DRUGS (3)
  1. DEXTROSE. [Suspect]
     Active Substance: DEXTROSE
  2. DEXTROSE. [Suspect]
     Active Substance: DEXTROSE
     Dosage: 10% IV BAGS 250 ML?
  3. SODIUM CHLORIDE SODIUM CHLORIDE [Suspect]
     Active Substance: SODIUM CHLORIDE

REACTIONS (1)
  - Circumstance or information capable of leading to medication error [None]
